FAERS Safety Report 7091890-5 (Version None)
Quarter: 2010Q4

REPORT INFORMATION
  Report Type: 
  Country: None (occurrence: None)
  Receive Date: 20101109
  Receipt Date: 20101029
  Transmission Date: 20110411
  Serious: Yes (Hospitalization)
  Sender: FDA-Public Use
  Company Number: DE-JNJFOC-20101100901

PATIENT
  Age: 71 Year
  Sex: Female
  Weight: 70 kg

DRUGS (1)
  1. CAELYX [Suspect]
     Indication: OVARIAN CANCER
     Dosage: 2 X 20MG
     Route: 042

REACTIONS (3)
  - BLOOD PRESSURE DECREASED [None]
  - PRESYNCOPE [None]
  - VISUAL IMPAIRMENT [None]
